FAERS Safety Report 20740515 (Version 5)
Quarter: 2023Q1

REPORT INFORMATION
  Report Type: Other
  Country: US (occurrence: None)
  Receive Date: 20220422
  Receipt Date: 20230105
  Transmission Date: 20230418
  Serious: Yes (Other)
  Sender: FDA-Public Use
  Company Number: US-ROCHE-2015470

PATIENT
  Sex: Female

DRUGS (1)
  1. VALCYTE [Suspect]
     Active Substance: VALGANCICLOVIR HYDROCHLORIDE
     Indication: Lung transplant
     Dosage: EVERY MONDAY WEDNESDAY AND FRIDAY?LAST TREATMENT DATE WAS 31/MAR/2022
     Route: 048

REACTIONS (10)
  - Off label use [Unknown]
  - Fungal infection [Unknown]
  - Pneumonectomy [Unknown]
  - Transplant rejection [Unknown]
  - Neoplasm malignant [Unknown]
  - Lung neoplasm malignant [Unknown]
  - Arthritis [Unknown]
  - Ill-defined disorder [Unknown]
  - Spinal fusion surgery [Unknown]
  - Headache [Unknown]
